FAERS Safety Report 17036343 (Version 1)
Quarter: 2019Q4

REPORT INFORMATION
  Report Type: Spontaneous
  Country: US (occurrence: US)
  Receive Date: 20191016
  Receipt Date: 20191016
  Transmission Date: 20200122
  Serious: Yes (Hospitalization)
  Sender: FDA-Public Use
  Company Number: None

PATIENT
  Age: 72 Year
  Sex: Female

DRUGS (1)
  1. GLATOPA [Suspect]
     Active Substance: GLATIRAMER ACETATE
     Indication: MULTIPLE SCLEROSIS
     Route: 058
     Dates: start: 20130710

REACTIONS (7)
  - Head injury [None]
  - Flushing [None]
  - Chills [None]
  - Fall [None]
  - Thrombosis [None]
  - Loss of consciousness [None]
  - Chest pain [None]

NARRATIVE: CASE EVENT DATE: 20190925
